FAERS Safety Report 4351541-7 (Version None)
Quarter: 2004Q2

REPORT INFORMATION
  Report Type: 
  Country: None (occurrence: None)
  Receive Date: 20040428
  Receipt Date: 20040413
  Transmission Date: 20050107
  Serious: Yes (Hospitalization)
  Sender: FDA-Public Use
  Company Number: USA040260130

PATIENT
  Age: 54 Year
  Sex: Female
  Weight: 75 kg

DRUGS (1)
  1. GEMZAR [Suspect]
     Indication: OVARIAN CANCER
     Dosage: 1000 MG/M2/1 WEEK
     Dates: start: 20031212, end: 20040218

REACTIONS (9)
  - BURSITIS [None]
  - CHONDROCALCINOSIS [None]
  - FEBRILE NEUTROPENIA [None]
  - JOINT EFFUSION [None]
  - LEUKOCYTOSIS [None]
  - OEDEMA PERIPHERAL [None]
  - PAIN [None]
  - SEROSITIS [None]
  - WHITE BLOOD CELL COUNT DECREASED [None]
